FAERS Safety Report 18016093 (Version 1)
Quarter: 2020Q3

REPORT INFORMATION
  Report Type: Other
  Country: CN (occurrence: CN)
  Receive Date: 20200713
  Receipt Date: 20200713
  Transmission Date: 20201103
  Serious: Yes (Other)
  Sender: FDA-Public Use
  Company Number: CN-ROCHE-2638934

PATIENT

DRUGS (2)
  1. CAPECITABINE. [Suspect]
     Active Substance: CAPECITABINE
     Indication: COLORECTAL CANCER
     Route: 048
  2. OXALIPLATIN. [Suspect]
     Active Substance: OXALIPLATIN
     Indication: COLORECTAL CANCER
     Route: 041

REACTIONS (5)
  - Anaemia [Unknown]
  - Gastrointestinal disorder [Unknown]
  - Leukopenia [Unknown]
  - Hepatic function abnormal [Unknown]
  - Platelet count decreased [Unknown]
